FAERS Safety Report 5844413-X (Version None)
Quarter: 2008Q3

REPORT INFORMATION
  Report Type: 
  Country: None (occurrence: None)
  Receive Date: 20080808
  Receipt Date: 20080730
  Transmission Date: 20090109
  Serious: Yes (Hospitalization, Other)
  Sender: FDA-Public Use
  Company Number: 2008US002026

PATIENT
  Age: 14 Year
  Sex: Male

DRUGS (1)
  1. AMBISOME [Suspect]
     Indication: PROPHYLAXIS
     Dosage: IV NOS
     Route: 042
     Dates: start: 20080422, end: 20080530

REACTIONS (3)
  - AZOTAEMIA [None]
  - DIABETES MELLITUS [None]
  - RENAL IMPAIRMENT [None]
